FAERS Safety Report 5119799-4 (Version None)
Quarter: 2006Q3

REPORT INFORMATION
  Report Type: 
  Country: None (occurrence: None)
  Receive Date: 20060929
  Receipt Date: 20060915
  Transmission Date: 20061208
  Serious: Yes (Hospitalization, Other)
  Sender: FDA-Public Use
  Company Number: CERZ-10646

PATIENT
  Age: 61 Year
  Sex: Female
  Weight: 70 kg

DRUGS (2)
  1. CEREZYME [Suspect]
     Indication: GAUCHER'S DISEASE
     Dosage: 3800 UNITS Q2WKS IV
     Route: 042
     Dates: start: 20040416
  2. LEVOTHYROXINE SODIUM [Concomitant]

REACTIONS (3)
  - BONE DENSITY DECREASED [None]
  - DIFFUSE LARGE B-CELL LYMPHOMA [None]
  - FATIGUE [None]
